FAERS Safety Report 7221315-8 (Version None)
Quarter: 2011Q1

REPORT INFORMATION
  Report Type: 
  Country: None (occurrence: None)
  Receive Date: 20110103
  Receipt Date: 20101220
  Transmission Date: 20110831
  Serious: Yes (Other)
  Sender: FDA-Public Use
  Company Number: FKO201000604

PATIENT
  Age: 53 Year
  Sex: Female

DRUGS (5)
  1. FLUOROURACIL [Suspect]
     Indication: COLORECTAL CANCER METASTATIC
     Dosage: INTRAVENOUS
     Route: 042
     Dates: start: 20090812, end: 20100512
  2. IRINOTECAN 20 MG/ML CONCENTRATE FOR SOLUTION FOR INFUSION (IRINOTECAN [Suspect]
     Indication: COLORECTAL CANCER METASTATIC
     Dosage: (320 MG), INTRAVENOUS
     Route: 042
     Dates: start: 20090812, end: 20100512
  3. CALCIUM FOLINATE (CALCIUM FOLINATE) (CALCIUM FOLINATE) [Suspect]
     Dosage: (1050 MG), INTRAVENOUS, INTRAVENOUS
     Route: 042
     Dates: start: 20090812, end: 20100512
  4. CALCIUM FOLINATE (CALCIUM FOLINATE) (CALCIUM FOLINATE) [Suspect]
     Dosage: (1050 MG), INTRAVENOUS, INTRAVENOUS
     Route: 042
     Dates: start: 20100510
  5. AVASTIN [Suspect]
     Indication: COLORECTAL CANCER METASTATIC
     Dosage: (400 MG), INTRAVENOUS
     Route: 042
     Dates: start: 20091014, end: 20100512

REACTIONS (1)
  - DYSTONIA [None]
